FAERS Safety Report 9641573 (Version 3)
Quarter: 2015Q1

REPORT INFORMATION
  Report Type: Report from Study
  Country: BR (occurrence: BR)
  Receive Date: 20131023
  Receipt Date: 20150216
  Transmission Date: 20150721
  Serious: Yes (Other)
  Sender: FDA-Public Use
  Company Number: BR-ABBVIE-13P-020-1138844-00

PATIENT
  Age: 21 Year
  Sex: Female
  Weight: 66.5 kg

DRUGS (3)
  1. HUMIRA [Suspect]
     Active Substance: ADALIMUMAB
     Indication: PSORIASIS
     Dosage: WEEK 0
     Route: 058
     Dates: start: 20130517, end: 20130517
  2. HUMIRA [Suspect]
     Active Substance: ADALIMUMAB
     Dosage: 1 WEEK LATER
     Route: 058
     Dates: start: 201305, end: 201305
  3. HUMIRA [Suspect]
     Active Substance: ADALIMUMAB
     Route: 058

REACTIONS (6)
  - Intraocular pressure increased [Recovering/Resolving]
  - Thyroid disorder [Recovering/Resolving]
  - Drug-induced liver injury [Recovering/Resolving]
  - Insulin resistance [Unknown]
  - Headache [Recovered/Resolved]
  - Glucose tolerance impaired [Recovering/Resolving]

NARRATIVE: CASE EVENT DATE: 20130524
